FAERS Safety Report 6544631-1 (Version None)
Quarter: 2010Q1

REPORT INFORMATION
  Report Type: 
  Country: None (occurrence: None)
  Receive Date: 20100121
  Receipt Date: 20100118
  Transmission Date: 20100710
  Serious: Yes (Death, Hospitalization)
  Sender: FDA-Public Use
  Company Number: PHHO2009DE15809

PATIENT
  Weight: 91.5 kg

DRUGS (4)
  1. SANDIMMUNE [Suspect]
     Indication: RENAL TRANSPLANT
     Dosage: 350
  2. MYFORTIC [Suspect]
     Indication: RENAL TRANSPLANT
     Dosage: 1440
  3. NO TREATMENT RECEIVED NOMED [Suspect]
     Indication: RENAL TRANSPLANT
     Dosage: NO TREATMENT RECEIVED
  4. DECORTIN [Suspect]
     Indication: RENAL TRANSPLANT
     Dosage: 15

REACTIONS (9)
  - ANURIA [None]
  - CYTOMEGALOVIRUS INFECTION [None]
  - ENDOCARDITIS [None]
  - MULTI-ORGAN FAILURE [None]
  - PNEUMOCYSTIS JIROVECI PNEUMONIA [None]
  - PYREXIA [None]
  - RESPIRATORY FATIGUE [None]
  - SEPSIS [None]
  - TACHYARRHYTHMIA [None]
